FAERS Safety Report 21875926 (Version 1)
Quarter: 2023Q1

REPORT INFORMATION
  Report Type: Report from Study
  Country: US (occurrence: US)
  Receive Date: 20230118
  Receipt Date: 20230118
  Transmission Date: 20230418
  Serious: No
  Sender: FDA-Public Use
  Company Number: US-ABBVIE-22K-163-4475752-00

PATIENT
  Sex: Female

DRUGS (1)
  1. VENCLEXTA [Suspect]
     Active Substance: VENETOCLAX
     Indication: Plasma cell myeloma
     Dosage: ON AN UNKNOWN DATE IN 2022 THE EVENTS OCCURRED
     Route: 048
     Dates: start: 20220510

REACTIONS (18)
  - Gastric disorder [Unknown]
  - Blood potassium decreased [Unknown]
  - Gout [Unknown]
  - Abnormal faeces [Unknown]
  - Oesophageal disorder [Unknown]
  - Dyspepsia [Unknown]
  - Motion sickness [Unknown]
  - Nasopharyngitis [Unknown]
  - Tremor [Unknown]
  - Off label use [Unknown]
  - Retching [Unknown]
  - Vomiting [Unknown]
  - Nausea [Unknown]
  - Constipation [Unknown]
  - Diarrhoea [Unknown]
  - Blood pressure abnormal [Unknown]
  - Neuropathy peripheral [Unknown]
  - Weight bearing difficulty [Unknown]
